FAERS Safety Report 11068276 (Version 3)
Quarter: 2016Q1

REPORT INFORMATION
  Report Type: Spontaneous
  Country: JP (occurrence: JP)
  Receive Date: 20150427
  Receipt Date: 20160205
  Transmission Date: 20160525
  Serious: Yes (Other)
  Sender: FDA-Public Use
  Company Number: JP-RECORDATI RARE DISEASES-JP-R13005-15-00027

PATIENT
  Age: 5 Day
  Sex: Male
  Weight: .82 kg

DRUGS (3)
  1. GENTAMICIN. [Suspect]
     Active Substance: GENTAMICIN
     Indication: PRODUCT USED FOR UNKNOWN INDICATION
     Route: 042
     Dates: start: 20140713, end: 20140720
  2. INDACIN [Suspect]
     Active Substance: INDOMETHACIN
     Indication: PATENT DUCTUS ARTERIOSUS
     Route: 041
     Dates: start: 20140715, end: 20140717
  3. VICCILLIN [Suspect]
     Active Substance: AMPICILLIN
     Indication: PRODUCT USED FOR UNKNOWN INDICATION
     Route: 042
     Dates: start: 20140713, end: 20140720

REACTIONS (2)
  - Renal failure neonatal [Recovered/Resolved]
  - Circulatory failure neonatal [Unknown]

NARRATIVE: CASE EVENT DATE: 20140718
